FAERS Safety Report 16021397 (Version 1)
Quarter: 2019Q1

REPORT INFORMATION
  Report Type: Spontaneous
  Country: US (occurrence: US)
  Receive Date: 20190201
  Receipt Date: 20190201
  Transmission Date: 20190418
  Serious: No
  Sender: FDA-Public Use
  Company Number: None

PATIENT
  Age: 66 Year
  Sex: Male

DRUGS (1)
  1. ODOMZO [Suspect]
     Active Substance: SONIDEGIB
     Indication: BASAL CELL CARCINOMA
     Dosage: TAKE 1 CAPSULE BY MOUTH DAILY ON EMPTY STOMACH AT LEAST 1 HOUR BEFORE OR 2 HOURS AFTER A MEAL
     Route: 048
     Dates: start: 201901

REACTIONS (2)
  - Pneumonia [None]
  - Therapy cessation [None]
